FAERS Safety Report 19587802 (Version 3)
Quarter: 2022Q1

REPORT INFORMATION
  Report Type: Report from Study
  Country: IT (occurrence: None)
  Receive Date: 20210721
  Receipt Date: 20220127
  Transmission Date: 20220423
  Serious: Yes (Other)
  Sender: FDA-Public Use
  Company Number: IT-EISAI MEDICAL RESEARCH-EC-2021-096400

PATIENT
  Age: 78 Year
  Sex: Male
  Weight: 69 kg

DRUGS (13)
  1. LENVATINIB [Suspect]
     Active Substance: LENVATINIB
     Indication: Non-small cell lung cancer metastatic
     Dosage: STARTING DOSE AT 20 MG, FLUCTUATED DOSES
     Route: 048
     Dates: start: 20200120, end: 20210502
  2. LENVATINIB [Suspect]
     Active Substance: LENVATINIB
     Route: 048
     Dates: start: 20210503, end: 20210628
  3. PEMBROLIZUMAB [Suspect]
     Active Substance: PEMBROLIZUMAB
     Indication: Non-small cell lung cancer metastatic
     Route: 041
     Dates: start: 20200120, end: 20210412
  4. PEMBROLIZUMAB [Suspect]
     Active Substance: PEMBROLIZUMAB
     Route: 041
     Dates: start: 20210503, end: 20210503
  5. PEMBROLIZUMAB [Suspect]
     Active Substance: PEMBROLIZUMAB
     Route: 041
     Dates: start: 20210524
  6. PAROXETINE [Concomitant]
     Active Substance: PAROXETINE
     Dates: start: 201101
  7. HYDROCHLOROTHIAZIDE\OLMESARTAN MEDOXOMIL [Concomitant]
     Active Substance: HYDROCHLOROTHIAZIDE\OLMESARTAN MEDOXOMIL
     Dates: start: 201101
  8. ATENOLOL [Concomitant]
     Active Substance: ATENOLOL
     Dates: start: 201101
  9. DUTASTERIDE [Concomitant]
     Active Substance: DUTASTERIDE
     Dates: start: 201101
  10. TAMSULOSIN HYDROCHLORIDE [Concomitant]
     Active Substance: TAMSULOSIN HYDROCHLORIDE
     Dates: start: 201101
  11. ASPIRIN [Concomitant]
     Active Substance: ASPIRIN
     Dates: start: 201101
  12. LASIX [Concomitant]
     Active Substance: FUROSEMIDE
     Dates: start: 20200309
  13. DOXAZOSIN [Concomitant]
     Active Substance: DOXAZOSIN MESYLATE
     Dates: start: 20200727

REACTIONS (1)
  - Diarrhoea [Not Recovered/Not Resolved]

NARRATIVE: CASE EVENT DATE: 20210503
